FAERS Safety Report 16062158 (Version 2)
Quarter: 2019Q1

REPORT INFORMATION
  Report Type: Spontaneous
  Country: BE (occurrence: BE)
  Receive Date: 20190312
  Receipt Date: 20190314
  Transmission Date: 20190418
  Serious: Yes (Hospitalization, Other)
  Sender: FDA-Public Use
  Company Number: BE-ROCHE-2279368

PATIENT
  Age: 22 Year

DRUGS (6)
  1. LOMUSTINE. [Concomitant]
     Active Substance: LOMUSTINE
  2. SOMATROPIN. [Suspect]
     Active Substance: SOMATROPIN
     Indication: OFF LABEL USE
  3. PROCARBAZINE [Concomitant]
     Active Substance: PROCARBAZINE
  4. VINCRISTINE [Concomitant]
     Active Substance: VINCRISTINE
  5. SOMATROPIN. [Suspect]
     Active Substance: SOMATROPIN
     Indication: NOONAN SYNDROME
     Dosage: 0.033-0.037 MG/KG/DAY
     Route: 065
  6. TEMOZOLOMIDE. [Concomitant]
     Active Substance: TEMOZOLOMIDE

REACTIONS (4)
  - Off label use [Unknown]
  - Glioblastoma [Unknown]
  - Oligoastrocytoma [Unknown]
  - Intentional product use issue [Unknown]
